FAERS Safety Report 26134043 (Version 1)
Quarter: 2025Q4

REPORT INFORMATION
  Report Type: Spontaneous
  Country: EU (occurrence: EU)
  Receive Date: 20251209
  Receipt Date: 20251209
  Transmission Date: 20260117
  Serious: Yes (Hospitalization)
  Sender: RANBAXY
  Company Number: EU-AFSSAPS-TO2025001330

PATIENT
  Age: 88 Year
  Sex: Male
  Weight: 79 kg

DRUGS (1)
  1. LANSOPRAZOLE [Suspect]
     Active Substance: LANSOPRAZOLE
     Indication: Gastrooesophageal reflux disease
     Dosage: 30 MILLIGRAM, DAILY, 15MG 2*/D
     Route: 048
     Dates: start: 20250729, end: 20250806

REACTIONS (1)
  - Eosinophilia [Recovering/Resolving]

NARRATIVE: CASE EVENT DATE: 20250731
